FAERS Safety Report 19042253 (Version 1)
Quarter: 2021Q1

REPORT INFORMATION
  Report Type: Report from Study
  Country: IT (occurrence: IT)
  Receive Date: 20210323
  Receipt Date: 20210323
  Transmission Date: 20210420
  Serious: Yes (Other)
  Sender: FDA-Public Use
  Company Number: IT-AUROBINDO-AUR-APL-2021-011392

PATIENT
  Age: 45 Year
  Sex: Male

DRUGS (17)
  1. ABACAVIR SULPHATE [Suspect]
     Active Substance: ABACAVIR
     Dosage: UNK
     Route: 065
  2. RITONAVIR. [Suspect]
     Active Substance: RITONAVIR
     Dosage: UNK
     Route: 065
  3. RITONAVIR. [Suspect]
     Active Substance: RITONAVIR
     Dosage: UNK
     Route: 065
  4. RITONAVIR. [Suspect]
     Active Substance: RITONAVIR
     Dosage: UNK
     Route: 065
  5. FOSAMPRENAVIR [Suspect]
     Active Substance: FOSAMPRENAVIR
     Dosage: UNK
     Route: 065
  6. LAMIVUDINE. [Suspect]
     Active Substance: LAMIVUDINE
     Dosage: UNK
     Route: 065
  7. RITONAVIR. [Suspect]
     Active Substance: RITONAVIR
     Indication: HIV INFECTION
     Dosage: UNK
     Route: 065
  8. ZIDOVUDINE. [Concomitant]
     Active Substance: ZIDOVUDINE
     Indication: HIV INFECTION
     Dosage: UNK
     Route: 065
  9. LAMIVUDINE. [Suspect]
     Active Substance: LAMIVUDINE
     Indication: HIV INFECTION
     Dosage: UNK
     Route: 065
  10. LAMIVUDINE. [Suspect]
     Active Substance: LAMIVUDINE
     Dosage: UNK
     Route: 065
  11. ABACAVIR SULPHATE [Suspect]
     Active Substance: ABACAVIR
     Dosage: UNK
     Route: 065
  12. FOSAMPRENAVIR [Suspect]
     Active Substance: FOSAMPRENAVIR
     Dosage: UNK
     Route: 065
  13. ABACAVIR SULPHATE [Suspect]
     Active Substance: ABACAVIR
     Indication: HIV INFECTION
     Dosage: UNK
     Route: 065
  14. LAMIVUDINE. [Suspect]
     Active Substance: LAMIVUDINE
     Dosage: UNK
     Route: 065
  15. ABACAVIR SULPHATE [Suspect]
     Active Substance: ABACAVIR
     Dosage: UNK
     Route: 065
  16. FOSAMPRENAVIR [Suspect]
     Active Substance: FOSAMPRENAVIR
     Indication: HIV INFECTION
     Dosage: UNK
     Route: 065
  17. FOSAMPRENAVIR [Suspect]
     Active Substance: FOSAMPRENAVIR
     Dosage: UNK
     Route: 065

REACTIONS (9)
  - Disease recurrence [Recovered/Resolved]
  - Cognitive disorder [Recovered/Resolved]
  - Peripheral venous disease [Recovered/Resolved]
  - Brain oedema [Recovered/Resolved]
  - Cerebral disorder [Recovered/Resolved]
  - Nervous system disorder [Recovered/Resolved]
  - CSF HIV escape syndrome [Recovered/Resolved]
  - Virologic failure [Recovered/Resolved]
  - White matter lesion [Recovered/Resolved]
